FAERS Safety Report 9999673 (Version 2)
Quarter: 2014Q2

REPORT INFORMATION
  Report Type: Report from Study
  Country: US (occurrence: US)
  Receive Date: 20140312
  Receipt Date: 20140522
  Transmission Date: 20141212
  Serious: Yes (Other)
  Sender: FDA-Public Use
  Company Number: US-JNJFOC-20140302876

PATIENT
  Age: 56 Year
  Sex: Female
  Weight: 94.8 kg

DRUGS (8)
  1. SIMPONI [Suspect]
     Indication: IRRITABLE BOWEL SYNDROME
     Dosage: STARTED IN OCT OR NOV-2013
     Route: 058
     Dates: start: 201311, end: 201404
  2. SIMPONI [Suspect]
     Indication: PSORIATIC ARTHROPATHY
     Dosage: STARTED IN OCT OR NOV-2013
     Route: 058
     Dates: start: 201311, end: 201404
  3. PREDNISOLONE [Suspect]
     Indication: VIITH NERVE PARALYSIS
     Route: 065
  4. ENALAPRIL [Concomitant]
     Indication: HYPERTENSION
     Route: 048
  5. TYLENOL [Concomitant]
     Indication: PAIN
     Route: 048
  6. ZYRTEC [Concomitant]
     Indication: MULTIPLE ALLERGIES
     Route: 048
  7. CELEBREX [Concomitant]
     Route: 048
  8. TRAMADOL [Concomitant]
     Indication: PAIN
     Route: 048

REACTIONS (7)
  - VIIth nerve paralysis [Not Recovered/Not Resolved]
  - Pustular psoriasis [Not Recovered/Not Resolved]
  - Nasopharyngitis [Recovered/Resolved]
  - Drug dose omission [Unknown]
  - Off label use [Unknown]
  - Therapeutic response decreased [Unknown]
  - Psoriasis [Unknown]
